FAERS Safety Report 5236871-9 (Version None)
Quarter: 2007Q1

REPORT INFORMATION
  Report Type: 
  Country: None (occurrence: None)
  Receive Date: 20070213
  Receipt Date: 20070205
  Transmission Date: 20070707
  Serious: No
  Sender: FDA-Public Use
  Company Number: US-AMGEN-US208705

PATIENT
  Sex: Female
  Weight: 80.8 kg

DRUGS (3)
  1. ENBREL [Suspect]
     Indication: RHEUMATOID ARTHRITIS
     Route: 058
     Dates: start: 20030128
  2. METHOTREXATE [Concomitant]
     Dates: start: 20061001
  3. PLAQUENIL [Concomitant]
     Route: 048
     Dates: start: 19980101

REACTIONS (2)
  - RHEUMATOID ARTHRITIS [None]
  - SYSTEMIC LUPUS ERYTHEMATOSUS [None]
